FAERS Safety Report 7083829-3 (Version None)
Quarter: 2010Q4

REPORT INFORMATION
  Report Type: 
  Country: None (occurrence: None)
  Receive Date: 20101103
  Receipt Date: 20101103
  Transmission Date: 20110411
  Serious: No
  Sender: FDA-Public Use
  Company Number: None

PATIENT
  Sex: Female
  Weight: 55.61 kg

DRUGS (3)
  1. CARBOPLATIN [Suspect]
     Dosage: 666 MG
  2. TAXOL [Suspect]
     Dosage: 271 MG
  3. TOPOTECAN [Suspect]
     Dosage: 4.65 MG

REACTIONS (5)
  - ANAEMIA [None]
  - HEPATECTOMY [None]
  - MYELODYSPLASTIC SYNDROME [None]
  - OVARIAN CANCER RECURRENT [None]
  - THROMBOCYTOPENIA [None]
